FAERS Safety Report 7402546-0 (Version None)
Quarter: 2011Q2

REPORT INFORMATION
  Report Type: 
  Country: None (occurrence: None)
  Receive Date: 20110408
  Receipt Date: 20110329
  Transmission Date: 20111010
  Serious: Yes (Hospitalization)
  Sender: FDA-Public Use
  Company Number: PHHY2011BR26286

PATIENT
  Sex: Male

DRUGS (5)
  1. EXELON [Suspect]
     Dosage: 18MG/10CM2, 1 PATCH A DAY
     Route: 062
  2. EXELON [Suspect]
     Dosage: 9MG/5CM2
     Route: 062
     Dates: start: 20110301, end: 20110326
  3. EXELON [Suspect]
     Dosage: 18MG/10CM2
     Route: 062
     Dates: start: 20110327, end: 20110328
  4. RISPERIDONE [Concomitant]
  5. EXELON [Suspect]
     Dosage: 9MG/5CM2
     Route: 062
     Dates: start: 20110328

REACTIONS (2)
  - BLOOD SODIUM DECREASED [None]
  - INCORRECT DOSE ADMINISTERED [None]
